FAERS Safety Report 8318384-0 (Version None)
Quarter: 2012Q2

REPORT INFORMATION
  Report Type: 
  Country: None (occurrence: None)
  Receive Date: 20120427
  Receipt Date: 20120423
  Transmission Date: 20120825
  Serious: Yes (Other)
  Sender: FDA-Public Use
  Company Number: US-BAYER-200940281NA

PATIENT
  Age: 71 Year
  Sex: Female
  Weight: 72.562 kg

DRUGS (26)
  1. HUMULIN [INSULIN HUMAN] [Concomitant]
  2. ALLOPURINOL [Concomitant]
     Dosage: 100MG
     Route: 048
     Dates: start: 20050511
  3. ZINACEF [Concomitant]
  4. PERSANTINE [Concomitant]
     Dosage: 75MG
     Route: 048
     Dates: start: 20050511
  5. DOPAMINE HCL [Concomitant]
  6. PEPCID [Concomitant]
  7. SOLU-MEDROL [Concomitant]
  8. SCOPOLAMINE [Concomitant]
  9. NITROGLYCERIN [Concomitant]
     Dosage: TITRATE
     Route: 042
     Dates: start: 20050508
  10. TRASYLOL [Suspect]
     Indication: CORONARY ARTERY BYPASS
     Route: 042
     Dates: start: 20050511
  11. COLACE [Concomitant]
  12. MAVIK [Concomitant]
  13. MAGNESIUM SULFATE [Concomitant]
     Dosage: 5MG
     Route: 042
     Dates: start: 20050508
  14. LIPITOR [Concomitant]
     Dosage: 40MG
     Route: 048
  15. LOVENOX [Concomitant]
  16. HEPARIN [Concomitant]
     Dosage: UNK
     Dates: start: 20050511
  17. LASIX [Concomitant]
  18. INTEGRILIN [Concomitant]
     Dosage: UNK
     Dates: start: 20050507
  19. ZOCOR [Concomitant]
  20. PHENERGAN HCL [Concomitant]
     Dosage: 6.25MG
     Route: 042
     Dates: start: 20050508
  21. EPINEPHRINE [Concomitant]
     Dosage: UNK
     Dates: start: 20050511
  22. TRASYLOL [Suspect]
     Dosage: LOADING DOSE: 200 LOADING FOLLOWED BY 50CC/HR, CONTINUED INTO ICU UNTIL DONE
  23. METOPROLOL TARTRATE [Concomitant]
  24. ASPIRIN [Concomitant]
  25. MORPHINE [Concomitant]
  26. DILTIAZEM [Concomitant]

REACTIONS (13)
  - AMPUTATION [None]
  - ANHEDONIA [None]
  - RENAL FAILURE [None]
  - INJURY [None]
  - EMOTIONAL DISTRESS [None]
  - ANXIETY [None]
  - UNEVALUABLE EVENT [None]
  - RENAL INJURY [None]
  - PARALYSIS [None]
  - STRESS [None]
  - PAIN [None]
  - RENAL IMPAIRMENT [None]
  - FEAR [None]
